FAERS Safety Report 7214753-0 (Version None)
Quarter: 2011Q1

REPORT INFORMATION
  Report Type: 
  Country: None (occurrence: None)
  Receive Date: 20110107
  Receipt Date: 20100125
  Transmission Date: 20110831
  Serious: No
  Sender: FDA-Public Use
  Company Number: A0841249A

PATIENT
  Sex: Female

DRUGS (3)
  1. LOVAZA [Suspect]
     Dosage: 2CAP TWICE PER DAY
     Route: 048
     Dates: start: 20080101
  2. CRESTOR [Concomitant]
  3. ATACAND [Concomitant]

REACTIONS (1)
  - DRUG ADMINISTRATION ERROR [None]
